FAERS Safety Report 17401576 (Version 1)
Quarter: 2020Q1

REPORT INFORMATION
  Report Type: Spontaneous
  Country: SE (occurrence: SE)
  Receive Date: 20200211
  Receipt Date: 20200211
  Transmission Date: 20200409
  Serious: Yes (Other)
  Sender: FDA-Public Use
  Company Number: SE-MYLANLABS-2020M1014188

PATIENT
  Age: 76 Year
  Sex: Female

DRUGS (2)
  1. METOPROLOL. [Suspect]
     Active Substance: METOPROLOL
     Indication: HYPERTENSION
     Dosage: 50MG 1+0+0
     Route: 048
     Dates: start: 2011, end: 201802
  2. FELODIPINE. [Suspect]
     Active Substance: FELODIPINE
     Indication: HYPERTENSION
     Dosage: 2,5MG 1+0+0
     Route: 048
     Dates: start: 201802, end: 20190830

REACTIONS (3)
  - Rash [Recovered/Resolved with Sequelae]
  - Alopecia [Recovered/Resolved with Sequelae]
  - Pruritus [Recovered/Resolved with Sequelae]

NARRATIVE: CASE EVENT DATE: 2012
